FAERS Safety Report 5349974-5 (Version None)
Quarter: 2007Q2

REPORT INFORMATION
  Report Type: 
  Country: None (occurrence: None)
  Receive Date: 20070607
  Receipt Date: 20070601
  Transmission Date: 20071010
  Serious: Yes (Death)
  Sender: FDA-Public Use
  Company Number: GB-SHR-GB-2007-020786

PATIENT
  Sex: Male

DRUGS (1)
  1. CAMPATH [Suspect]
     Dosage: 30 MG 3XWEEKLY
     Dates: start: 20070101

REACTIONS (1)
  - DEATH [None]
